FAERS Safety Report 6637199-2 (Version None)
Quarter: 2010Q1

REPORT INFORMATION
  Report Type: 
  Country: None (occurrence: None)
  Receive Date: 20100310
  Receipt Date: 20100225
  Transmission Date: 20100710
  Serious: Yes (Life-Threatening, Hospitalization, Other)
  Sender: FDA-Public Use
  Company Number: 007465

PATIENT
  Age: 48 Year
  Sex: Female
  Weight: 54 kg

DRUGS (4)
  1. CIMZIA [Suspect]
     Indication: RHEUMATOID ARTHRITIS
     Dosage: 400 G 1X/2 WEEKS SUBCUTANEOUS
     Route: 058
     Dates: start: 20100119, end: 20100202
  2. PREDNISOLONE [Concomitant]
  3. CALCIUM [Concomitant]
  4. VIGANTOLETTEN [Concomitant]

REACTIONS (2)
  - CENTRAL NERVOUS SYSTEM LESION [None]
  - GRAND MAL CONVULSION [None]
